FAERS Safety Report 6464095-6 (Version None)
Quarter: 2009Q4

REPORT INFORMATION
  Report Type: 
  Country: None (occurrence: None)
  Receive Date: 20091130
  Receipt Date: 20091130
  Transmission Date: 20100525
  Serious: Yes (Other)
  Sender: FDA-Public Use
  Company Number: None

PATIENT
  Sex: Female
  Weight: 61.2356 kg

DRUGS (1)
  1. CITALOPRAM HYDROBROMIDE [Suspect]
     Indication: DEPRESSION
     Dosage: 40MG ONCE DAILY
     Dates: start: 20091006, end: 20091031

REACTIONS (11)
  - AMNESIA [None]
  - CONFUSIONAL STATE [None]
  - DYSARTHRIA [None]
  - FEELING ABNORMAL [None]
  - HYPOAESTHESIA [None]
  - IMPAIRED WORK ABILITY [None]
  - INSOMNIA [None]
  - LIP SWELLING [None]
  - PAIN [None]
  - PARAESTHESIA [None]
  - SYNCOPE [None]
